FAERS Safety Report 24787100 (Version 5)
Quarter: 2025Q4

REPORT INFORMATION
  Report Type: Report from Study
  Country: US (occurrence: None)
  Receive Date: 20241230
  Receipt Date: 20251128
  Transmission Date: 20260118
  Serious: Yes (Other)
  Sender: UCB
  Company Number: US-UCBSA-2024067746

PATIENT
  Age: 15 Year
  Weight: 65.09 kg

DRUGS (3)
  1. FENFLURAMINE [Suspect]
     Active Substance: FENFLURAMINE
     Indication: Lennox-Gastaut syndrome
     Dosage: 5.9 MILLILITER, 2X/DAY (BID)
  2. FENFLURAMINE [Suspect]
     Active Substance: FENFLURAMINE
     Dosage: 4 ML QAM + 5 ML QPM
  3. FENFLURAMINE [Suspect]
     Active Substance: FENFLURAMINE
     Dosage: 19.8 MILLIGRAM PER DAY

REACTIONS (5)
  - Mitral valve thickening [Unknown]
  - Cardiac index increased [Unknown]
  - Ear infection [Not Recovered/Not Resolved]
  - Somnolence [Not Recovered/Not Resolved]
  - Product use issue [Unknown]
